FAERS Safety Report 6042623-2 (Version None)
Quarter: 2009Q1

REPORT INFORMATION
  Report Type: 
  Country: None (occurrence: None)
  Receive Date: 20090119
  Receipt Date: 20090109
  Transmission Date: 20090719
  Serious: Yes (Hospitalization)
  Sender: FDA-Public Use
  Company Number: US-TYCO HEALTHCARE/MALLINCKRODT-T200802149

PATIENT
  Age: 44 Year
  Sex: Male
  Weight: 71 kg

DRUGS (5)
  1. OXYCODONE HCL [Suspect]
     Indication: PAIN
     Dosage: UNK
     Route: 048
     Dates: end: 20080101
  2. SUNITINIB [Suspect]
     Indication: NON-SMALL CELL LUNG CANCER
     Dosage: 37.5 MG, QD
     Route: 048
     Dates: start: 20080904, end: 20081028
  3. PEMETREXED [Suspect]
     Indication: NON-SMALL CELL LUNG CANCER
     Dosage: 500 MG/M2 OVER 10 MIN ON DAY 1
     Route: 042
     Dates: start: 20080904, end: 20081023
  4. FENTANYL CITRATE [Suspect]
  5. FENTANYL [Concomitant]
     Indication: PAIN
     Route: 062

REACTIONS (8)
  - CONFUSIONAL STATE [None]
  - CONSTIPATION [None]
  - COUGH [None]
  - DEEP VEIN THROMBOSIS [None]
  - DELIRIUM [None]
  - DYSPNOEA [None]
  - OEDEMA PERIPHERAL [None]
  - PAIN [None]
